FAERS Safety Report 5114899-7 (Version None)
Quarter: 2006Q3

REPORT INFORMATION
  Report Type: 
  Country: None (occurrence: None)
  Receive Date: 20060921
  Receipt Date: 20060906
  Transmission Date: 20061208
  Serious: Yes (Hospitalization)
  Sender: FDA-Public Use
  Company Number: 2006RR-03664

PATIENT
  Sex: Male

DRUGS (1)
  1. CEROXIM (CEFUROXIME AXETIL) [Suspect]
     Indication: LARYNGITIS
     Dosage: 1000 MG
     Dates: start: 20051213

REACTIONS (9)
  - AUTOIMMUNE THYROIDITIS [None]
  - CHRONIC SINUSITIS [None]
  - DIABETES MELLITUS [None]
  - EATON-LAMBERT SYNDROME [None]
  - GASTROOESOPHAGEAL REFLUX DISEASE [None]
  - HIATUS HERNIA [None]
  - HYPERTENSION [None]
  - HYPOTHYROIDISM [None]
  - THYROID NEOPLASM [None]
